FAERS Safety Report 10753808 (Version 1)
Quarter: 2015Q1

REPORT INFORMATION
  Report Type: Spontaneous
  Country: US (occurrence: None)
  Receive Date: 20150129
  Receipt Date: 20150129
  Transmission Date: 20150721
  Serious: Yes (Life-Threatening, Hospitalization, Disabling)
  Sender: FDA-Public Use
  Company Number: None

PATIENT
  Age: 57 Year
  Sex: Female
  Weight: 55.79 kg

DRUGS (2)
  1. LEVAQUIN [Suspect]
     Active Substance: LEVOFLOXACIN
     Dosage: 1 PILL PER DAY
     Route: 048
     Dates: start: 20150122, end: 20150123
  2. LEVAQUIN [Suspect]
     Active Substance: LEVOFLOXACIN
     Indication: SINUS DISORDER
     Dosage: 1 PILL PER DAY
     Route: 048
     Dates: start: 20150122, end: 20150123

REACTIONS (14)
  - Insomnia [None]
  - Decreased appetite [None]
  - Ear pain [None]
  - Vomiting [None]
  - Gait disturbance [None]
  - Visual impairment [None]
  - Dizziness [None]
  - Aphonia [None]
  - Tremor [None]
  - Hallucination [None]
  - Seizure [None]
  - Neuropathy peripheral [None]
  - Palpitations [None]
  - Fatigue [None]

NARRATIVE: CASE EVENT DATE: 20150122
